FAERS Safety Report 8681753 (Version 2)
Quarter: 2012Q4

REPORT INFORMATION
  Report Type: 
  Country: US (occurrence: US)
  Receive Date: 20120725
  Receipt Date: 20120921
  Transmission Date: 20130627
  Serious: No
  Sender: FDA-Public Use
  Company Number: US-009507513-2012SP026264

PATIENT
  Age: 49 Year
  Sex: Female

DRUGS (1)
  1. ASMANEX TWISTHALER [Suspect]
     Indication: ASTHMA
     Dosage: 220 Microgram, UNK

REACTIONS (4)
  - Wheezing [Recovering/Resolving]
  - Stomatitis [Recovering/Resolving]
  - Dysgeusia [Recovering/Resolving]
  - Dyspnoea [Recovering/Resolving]
